FAERS Safety Report 18447626 (Version 2)
Quarter: 2021Q2

REPORT INFORMATION
  Report Type: Report from Study
  Country: GB (occurrence: GB)
  Receive Date: 20201030
  Receipt Date: 20210424
  Transmission Date: 20210717
  Serious: Yes (Other)
  Sender: FDA-Public Use
  Company Number: NVSC2020GB286661

PATIENT
  Sex: Male

DRUGS (1)
  1. COSENTYX [Suspect]
     Active Substance: SECUKINUMAB
     Indication: PSORIATIC ARTHROPATHY
     Dosage: 300 MG, QMO
     Route: 058

REACTIONS (9)
  - Product supply issue [Unknown]
  - Product dose omission issue [Unknown]
  - Psoriasis [Unknown]
  - Middle insomnia [Unknown]
  - Rheumatoid arthritis [Unknown]
  - Gout [Unknown]
  - Pain [Unknown]
  - Musculoskeletal stiffness [Unknown]
  - Scab [Unknown]
